FAERS Safety Report 7961511-5 (Version None)
Quarter: 2011Q4

REPORT INFORMATION
  Report Type: 
  Country: None (occurrence: None)
  Receive Date: 20111202
  Receipt Date: 20110817
  Transmission Date: 20120403
  Serious: Yes (Other)
  Sender: FDA-Public Use
  Company Number: 2011MA012394

PATIENT
  Sex: Male

DRUGS (3)
  1. DOXAZOSIN MESYLATE [Suspect]
     Dosage: 20 MG QD
  2. ABILIFY [Suspect]
     Dosage: 20 MG;QD
  3. LISINOPRIL [Suspect]

REACTIONS (1)
  - DRUG INTERACTION [None]
